FAERS Safety Report 10557521 (Version 1)
Quarter: 2014Q4

REPORT INFORMATION
  Report Type: Spontaneous
  Country: US (occurrence: None)
  Receive Date: 20141030
  Receipt Date: 20141030
  Transmission Date: 20150529
  Serious: Yes (Life-Threatening, Hospitalization, Disabling)
  Sender: FDA-Public Use
  Company Number: None

PATIENT
  Age: 24 Year
  Sex: Female
  Weight: 90.72 kg

DRUGS (1)
  1. NUVARING [Suspect]
     Active Substance: ETHINYL ESTRADIOL\ETONOGESTREL
     Indication: CONTRACEPTION
     Dosage: 1 RING, 3 WKS USE, 1 WK NO, VAGINAL
     Route: 067
     Dates: start: 20140427, end: 20140722

REACTIONS (3)
  - Chest pain [None]
  - Dyspnoea [None]
  - Pulmonary embolism [None]

NARRATIVE: CASE EVENT DATE: 20140722
